FAERS Safety Report 6130093-5 (Version None)
Quarter: 2009Q1

REPORT INFORMATION
  Report Type: 
  Country: None (occurrence: None)
  Receive Date: 20090324
  Receipt Date: 20090319
  Transmission Date: 20090719
  Serious: Yes (Hospitalization)
  Sender: FDA-Public Use
  Company Number: FR-BRISTOL-MYERS SQUIBB COMPANY-14493241

PATIENT
  Age: 55 Year
  Sex: Male

DRUGS (4)
  1. GLUCOPHAGE [Suspect]
     Dosage: DURATION OF THERAPY: MORE THAN 2 YEARS
     Route: 048
  2. BYETTA [Suspect]
     Indication: DIABETES MELLITUS
     Route: 058
     Dates: start: 20081211, end: 20090103
  3. DAONIL [Suspect]
     Dosage: DURATION OF THERAPY: MORE THAN 2 YEARS
     Route: 048
  4. ENALAPRIL MALEATE AND HYDROCHLOROTHIAZIDE [Suspect]
     Dosage: DURATION OF THERAPY: MORE THAN 2 YEARS
     Route: 048

REACTIONS (1)
  - PANCREATITIS ACUTE [None]
